FAERS Safety Report 9612498 (Version 5)
Quarter: 2015Q2

REPORT INFORMATION
  Report Type: Spontaneous
  Country: TR (occurrence: TR)
  Receive Date: 20131010
  Receipt Date: 20150417
  Transmission Date: 20150821
  Serious: Yes (Other)
  Sender: FDA-Public Use
  Company Number: TR-AMGEN-TURSP2012014413

PATIENT
  Age: 76 Year
  Sex: Female

DRUGS (10)
  1. PREDNOL                            /00049601/ [Suspect]
     Active Substance: METHYLPREDNISOLONE
     Indication: RHEUMATOID ARTHRITIS
     Dosage: 4 MG, (2X 1/2 TABLETS), TWICE DAILY
     Route: 048
  2. PLAQUENIL [Concomitant]
     Active Substance: HYDROXYCHLOROQUINE SULFATE
     Dosage: 400 MG (2 X 200MG TABLETS), 2X/DAY
  3. CORTISONE [Suspect]
     Active Substance: CORTISONE\HYDROCORTISONE
     Indication: PRODUCT USED FOR UNKNOWN INDICATION
     Dosage: 4 MG, ONCE A DAY
     Route: 065
  4. ENBREL [Suspect]
     Active Substance: ETANERCEPT
     Dosage: 50 MG, WEEKLY
     Route: 058
     Dates: start: 2013, end: 201403
  5. ENBREL [Suspect]
     Active Substance: ETANERCEPT
     Dosage: 50 MG, QWK
     Route: 058
     Dates: start: 201408
  6. PREDNOL                            /00049601/ [Suspect]
     Active Substance: METHYLPREDNISOLONE
     Dosage: UNK
     Route: 065
  7. INSULIN [Concomitant]
     Active Substance: INSULIN NOS
     Indication: DIABETES MELLITUS
     Dosage: UNK
     Route: 058
  8. ENBREL [Suspect]
     Active Substance: ETANERCEPT
     Indication: RHEUMATOID ARTHRITIS
     Dosage: 50 MG, WEEKLY
     Route: 058
     Dates: start: 200602, end: 201106
  9. ENBREL [Suspect]
     Active Substance: ETANERCEPT
     Dosage: 50 MG, QWK
     Route: 058
     Dates: start: 20110602, end: 20130304
  10. ENBREL [Suspect]
     Active Substance: ETANERCEPT
     Dosage: UNK
     Route: 065
     Dates: start: 201403, end: 201408

REACTIONS (14)
  - Musculoskeletal pain [Unknown]
  - Injection site bruising [Not Recovered/Not Resolved]
  - C-reactive protein increased [Recovered/Resolved]
  - Arthropathy [Unknown]
  - Blood glucose increased [Recovered/Resolved]
  - Pneumonia [Recovering/Resolving]
  - Pain [Recovered/Resolved]
  - Swelling [Not Recovered/Not Resolved]
  - Asthenia [Recovered/Resolved]
  - Bronchitis [Not Recovered/Not Resolved]
  - Joint swelling [Recovered/Resolved]
  - Pain in extremity [Unknown]
  - Injection site swelling [Recovered/Resolved]
  - Mobility decreased [Recovered/Resolved]

NARRATIVE: CASE EVENT DATE: 2012
